FAERS Safety Report 11299684 (Version 1)
Quarter: 2015Q3

REPORT INFORMATION
  Report Type: Spontaneous
  Country: US (occurrence: US)
  Receive Date: 20150722
  Receipt Date: 20150722
  Transmission Date: 20151125
  Serious: No
  Sender: FDA-Public Use
  Company Number: US-ELI_LILLY_AND_COMPANY-US201302009573

PATIENT

DRUGS (3)
  1. NORDITROPIN [Concomitant]
     Active Substance: SOMATROPIN
     Dosage: UNK, UNKNOWN
     Route: 065
  2. HUMATROPE [Suspect]
     Active Substance: SOMATROPIN
     Dosage: UNK, UNKNOWN
     Route: 058
  3. NORDITROPIN [Concomitant]
     Active Substance: SOMATROPIN
     Dosage: UNK(HCP HAD TO DOUBLE THE DOSE), UNKNOWN
     Route: 065

REACTIONS (1)
  - Insulin-like growth factor decreased [Unknown]
